FAERS Safety Report 14120188 (Version 1)
Quarter: 2017Q4

REPORT INFORMATION
  Report Type: Report from Study
  Country: US (occurrence: US)
  Receive Date: 20171024
  Receipt Date: 20171024
  Transmission Date: 20180321
  Serious: Yes (Death, Other)
  Sender: FDA-Public Use
  Company Number: US-ROCHE-2007801

PATIENT

DRUGS (8)
  1. CISPLATIN. [Suspect]
     Active Substance: CISPLATIN
     Indication: ADENOCARCINOMA GASTRIC
     Dosage: GIVEN FOR 10 CYCLES
     Route: 042
  2. RILOTUMUMAB [Suspect]
     Active Substance: RILOTUMUMAB
     Indication: ADENOCARCINOMA GASTRIC
     Dosage: GIVEN FOR 10 CYCLES
     Route: 042
  3. CAPECITABINE. [Suspect]
     Active Substance: CAPECITABINE
     Indication: ADENOCARCINOMA GASTRIC
     Dosage: GIVEN FOR 10 CYCLES
     Route: 048
  4. CAPECITABINE. [Suspect]
     Active Substance: CAPECITABINE
     Indication: OESOPHAGEAL ADENOCARCINOMA
  5. EPIRUBICIN [Suspect]
     Active Substance: EPIRUBICIN
     Indication: OESOPHAGEAL ADENOCARCINOMA
  6. RILOTUMUMAB [Suspect]
     Active Substance: RILOTUMUMAB
     Indication: OESOPHAGEAL ADENOCARCINOMA
  7. EPIRUBICIN [Suspect]
     Active Substance: EPIRUBICIN
     Indication: ADENOCARCINOMA
     Dosage: GIVEN FOR 10 CYCLES
     Route: 042
  8. CISPLATIN. [Suspect]
     Active Substance: CISPLATIN
     Indication: OESOPHAGEAL ADENOCARCINOMA

REACTIONS (143)
  - Cough [Unknown]
  - Depression [Unknown]
  - Alanine aminotransferase increased [Unknown]
  - Haemoglobin decreased [Unknown]
  - Intestinal obstruction [Unknown]
  - Sepsis [Unknown]
  - Peripheral swelling [Unknown]
  - Neutropenic sepsis [Unknown]
  - Bacteraemia [Unknown]
  - Cerebrovascular accident [Unknown]
  - Eastern Cooperative Oncology Group performance status worsened [Unknown]
  - Embolism venous [Unknown]
  - Generalised oedema [Unknown]
  - Dysarthria [Unknown]
  - Fibrin D dimer increased [Unknown]
  - Dyspnoea [Unknown]
  - Dehydration [Unknown]
  - Anxiety [Unknown]
  - Aspartate aminotransferase increased [Unknown]
  - Blood alkaline phosphatase increased [Unknown]
  - Malnutrition [Unknown]
  - Acute myocardial infarction [Unknown]
  - Rib fracture [Unknown]
  - Brain oedema [Unknown]
  - Female genital tract fistula [Unknown]
  - Hypotonia [Unknown]
  - Stomatitis [Unknown]
  - Deep vein thrombosis [Unknown]
  - Oedema [Unknown]
  - Hyponatraemia [Unknown]
  - Urinary tract infection [Unknown]
  - Pain in extremity [Unknown]
  - Hyperbilirubinaemia [Unknown]
  - Hyperkalaemia [Unknown]
  - Respiratory tract infection [Unknown]
  - Lower respiratory tract infection [Unknown]
  - Pleural effusion [Unknown]
  - Subileus [Unknown]
  - Small intestinal obstruction [Unknown]
  - Coma [Unknown]
  - Hypofibrinogenaemia [Unknown]
  - Tumour haemorrhage [Unknown]
  - Acute respiratory distress syndrome [Unknown]
  - Axillary vein thrombosis [Unknown]
  - Ileus paralytic [Unknown]
  - Vomiting [Unknown]
  - Nausea [Unknown]
  - Decreased appetite [Unknown]
  - Oedema peripheral [Unknown]
  - Asthenia [Unknown]
  - Hypokalaemia [Unknown]
  - Hypocalcaemia [Unknown]
  - Thrombocytopenia [Unknown]
  - Neutrophil count decreased [Unknown]
  - Hyperglycaemia [Unknown]
  - Pneumonia [Unknown]
  - Musculoskeletal pain [Unknown]
  - Obstruction gastric [Unknown]
  - Bacterial infection [Unknown]
  - Ileus [Unknown]
  - Cataract [Unknown]
  - Diabetes mellitus [Unknown]
  - Ischaemic stroke [Unknown]
  - Fatigue [Unknown]
  - Constipation [Unknown]
  - Leukopenia [Unknown]
  - Hypoalbuminaemia [Unknown]
  - Pulmonary embolism [Unknown]
  - Creatinine renal clearance decreased [Unknown]
  - Mucosal inflammation [Unknown]
  - White blood cell count decreased [Unknown]
  - Ascites [Unknown]
  - Gastrooesophageal reflux disease [Unknown]
  - Hypoproteinaemia [Unknown]
  - Venous thrombosis limb [Unknown]
  - Gastric haemorrhage [Unknown]
  - Pulmonary artery thrombosis [Unknown]
  - Seizure [Unknown]
  - Subclavian vein thrombosis [Unknown]
  - Abdominal cavity drainage [Unknown]
  - Granulocyte count decreased [Unknown]
  - Hepatitis [Unknown]
  - Sudden death [Fatal]
  - Anaemia [Unknown]
  - Diarrhoea [Unknown]
  - Palmar-plantar erythrodysaesthesia syndrome [Unknown]
  - Weight decreased [Unknown]
  - Pyrexia [Unknown]
  - Dysphagia [Unknown]
  - Platelet count decreased [Unknown]
  - Hypophosphataemia [Unknown]
  - Polyneuropathy [Unknown]
  - Fall [Unknown]
  - General physical health deterioration [Unknown]
  - Gastrointestinal haemorrhage [Unknown]
  - Multiple organ dysfunction syndrome [Unknown]
  - Oesophageal stenosis [Unknown]
  - Colitis [Unknown]
  - Embolism [Unknown]
  - Oesophagitis [Unknown]
  - Cerebral haemorrhage [Unknown]
  - Gastroenteritis [Unknown]
  - Hepatotoxicity [Unknown]
  - Gastric perforation [Unknown]
  - Glomerular filtration rate abnormal [Unknown]
  - Neutropenia [Unknown]
  - Abdominal pain upper [Unknown]
  - Back pain [Unknown]
  - Hypotension [Unknown]
  - Pain [Unknown]
  - Syncope [Unknown]
  - Glomerular filtration rate decreased [Unknown]
  - Thrombosis [Unknown]
  - Urinary retention [Unknown]
  - Acute kidney injury [Unknown]
  - Venous thrombosis [Unknown]
  - Bronchitis [Unknown]
  - Abdominal pain lower [Unknown]
  - Pancytopenia [Unknown]
  - Cardio-respiratory arrest [Unknown]
  - Non-cardiac chest pain [Unknown]
  - Hypoxia [Unknown]
  - Amylase increased [Unknown]
  - Bile duct obstruction [Unknown]
  - Febrile neutropenia [Unknown]
  - Abdominal pain [Unknown]
  - Hypomagnesaemia [Unknown]
  - Neuropathy peripheral [Unknown]
  - Hypertension [Unknown]
  - Chest pain [Unknown]
  - Erythema [Unknown]
  - Thrombophlebitis [Unknown]
  - Cardiac arrest [Unknown]
  - Jaundice [Unknown]
  - Chronic kidney disease [Unknown]
  - Hydronephrosis [Unknown]
  - Hypercalcaemia [Unknown]
  - Peripheral artery thrombosis [Unknown]
  - Altered state of consciousness [Unknown]
  - Coma hepatic [Unknown]
  - Febrile bone marrow aplasia [Unknown]
  - Hypophagia [Unknown]
  - Lipase increased [Unknown]
